FAERS Safety Report 16221951 (Version 1)
Quarter: 2019Q2

REPORT INFORMATION
  Report Type: Spontaneous
  Country: FR (occurrence: FR)
  Receive Date: 20190422
  Receipt Date: 20190422
  Transmission Date: 20190711
  Serious: Yes (Other)
  Sender: FDA-Public Use
  Company Number: FR-SA-2019SA106059

PATIENT
  Age: 56 Year
  Sex: Male
  Weight: 108 kg

DRUGS (1)
  1. ALPROLIX [Suspect]
     Active Substance: EFTRENONACOG ALFA
     Indication: FACTOR IX DEFICIENCY
     Dosage: 5000 IU, QW
     Route: 041
     Dates: start: 20190308

REACTIONS (1)
  - Lymphangitis [Recovered/Resolved]

NARRATIVE: CASE EVENT DATE: 20190311
